FAERS Safety Report 6648601-4 (Version None)
Quarter: 2010Q1

REPORT INFORMATION
  Report Type: 
  Country: None (occurrence: None)
  Receive Date: 20100324
  Receipt Date: 20100318
  Transmission Date: 20100710
  Serious: Yes (Other)
  Sender: FDA-Public Use
  Company Number: US-SANOFI-AVENTIS-2009SA005861

PATIENT
  Age: 54 Year
  Sex: Male

DRUGS (16)
  1. MULTAQ [Suspect]
     Route: 048
     Dates: start: 20091001
  2. MULTAQ [Suspect]
     Indication: VENTRICULAR ARRHYTHMIA
     Route: 048
     Dates: start: 20091001
  3. MULTAQ [Suspect]
     Route: 048
  4. MULTAQ [Suspect]
     Route: 048
  5. MULTAQ [Suspect]
     Route: 048
  6. MULTAQ [Suspect]
     Route: 048
  7. COREG [Concomitant]
     Route: 048
  8. LISINOPRIL [Concomitant]
     Route: 048
     Dates: start: 20080101
  9. LISINOPRIL [Concomitant]
     Route: 048
     Dates: start: 20080101
  10. ASPIRIN [Concomitant]
     Route: 048
  11. MEXILETINE [Concomitant]
     Indication: VENTRICULAR ARRHYTHMIA
     Route: 048
  12. HYDRALAZINE HCL [Concomitant]
     Route: 048
     Dates: start: 20050101
  13. LIPITOR [Concomitant]
     Route: 048
     Dates: start: 20090101
  14. LANTUS [Concomitant]
     Route: 058
     Dates: start: 19970101
  15. HUMALOG [Concomitant]
     Route: 058
  16. ZOLOFT [Concomitant]

REACTIONS (16)
  - ACCOMMODATION DISORDER [None]
  - BLOOD GLUCOSE ABNORMAL [None]
  - CARDIAC FAILURE CONGESTIVE [None]
  - CHEST DISCOMFORT [None]
  - CONFUSIONAL STATE [None]
  - DEPRESSION [None]
  - DIZZINESS [None]
  - DYSPNOEA [None]
  - FATIGUE [None]
  - GAIT DISTURBANCE [None]
  - INCORRECT DOSE ADMINISTERED [None]
  - MYALGIA [None]
  - OEDEMA PERIPHERAL [None]
  - OFF LABEL USE [None]
  - SWELLING [None]
  - WEIGHT INCREASED [None]
